FAERS Safety Report 5175293-6 (Version None)
Quarter: 2006Q4

REPORT INFORMATION
  Report Type: 
  Country: None (occurrence: None)
  Receive Date: 20061211
  Receipt Date: 20061211
  Transmission Date: 20070319
  Serious: Yes (Other)
  Sender: FDA-Public Use
  Company Number: None

PATIENT
  Age: 39 Year
  Sex: Female
  Weight: 129.2752 kg

DRUGS (3)
  1. DEPO-MEDROL [Suspect]
     Indication: NECK PAIN
     Dates: start: 20040404
  2. DEPO-MEDROL [Suspect]
     Indication: NECK PAIN
     Dates: start: 20040704
  3. DEPO-MEDROL [Suspect]
     Indication: NECK PAIN
     Dates: start: 20041004

REACTIONS (16)
  - ANTINUCLEAR ANTIBODY POSITIVE [None]
  - CHRONIC FATIGUE SYNDROME [None]
  - COGNITIVE DISORDER [None]
  - DISTURBANCE IN ATTENTION [None]
  - GENERAL PHYSICAL HEALTH DETERIORATION [None]
  - HORMONE LEVEL ABNORMAL [None]
  - HYPERSENSITIVITY [None]
  - HYPOTHALAMO-PITUITARY DISORDERS [None]
  - HYPOTHYROIDISM [None]
  - INJURY [None]
  - MAJOR DEPRESSION [None]
  - MEMORY IMPAIRMENT [None]
  - MULTIPLE CHEMICAL SENSITIVITY [None]
  - NERVOUS SYSTEM DISORDER [None]
  - SECONDARY ADRENOCORTICAL INSUFFICIENCY [None]
  - SOMNOLENCE [None]
